FAERS Safety Report 24184230 (Version 2)
Quarter: 2024Q3

REPORT INFORMATION
  Report Type: Report from Study
  Country: US (occurrence: US)
  Receive Date: 20240807
  Receipt Date: 20240809
  Transmission Date: 20241017
  Serious: Yes (Other)
  Sender: PFIZER
  Company Number: US-PFIZER INC-202400230926

PATIENT
  Age: 77 Year
  Sex: Male

DRUGS (15)
  1. VYNDAMAX [Suspect]
     Active Substance: TAFAMIDIS
     Dosage: 1 CAP DAILY
     Dates: start: 20240531
  2. AMIODARONE [Concomitant]
     Active Substance: AMIODARONE
     Dosage: 100 MG, DAILY
  3. APIXABAN [Concomitant]
     Active Substance: APIXABAN
     Dosage: 5 MG, 2X/DAY
  4. ATORVASTATIN [Concomitant]
     Active Substance: ATORVASTATIN
     Dosage: QHS (BEFORE BED)
  5. BISACODYL [Concomitant]
     Active Substance: BISACODYL
     Dosage: 10 MG, PR DAILY
  6. BISOPROLOL [Concomitant]
     Active Substance: BISOPROLOL\BISOPROLOL FUMARATE
     Dosage: 2.5 MG, DAILY
     Dates: end: 202407
  7. CALCIUM CARBASPIRIN [Concomitant]
     Dosage: 500 MG, TID (THREE TIMES A DAY) AS NEEDED
  8. DOCUSATE [Concomitant]
     Active Substance: DOCUSATE
     Dosage: 200 MG, 2X/DAY
  9. DULOXETINE [Concomitant]
     Active Substance: DULOXETINE
     Dosage: 60 MG, DAILY
  10. MELATONIN [Concomitant]
     Active Substance: MELATONIN
     Dosage: 5 MG QHS (BEFORE BED) AND REPEATS 5 MG
  11. MVI [ASCORBIC ACID;DEXPANTHENOL;ERGOCALCIFEROL;NICOTINAMIDE;PYRIDOXINE [Concomitant]
     Dosage: UNK
  12. ARTIFICIAL TEARS (POLYVINYL ALCOHOL) [Concomitant]
     Active Substance: POLYVINYL ALCOHOL
     Dosage: UNK
  13. PANTOPRAZOLE [Concomitant]
     Active Substance: PANTOPRAZOLE
     Dosage: 40 MG, 2X/DAY
  14. SPIRONOLACTONE [Concomitant]
     Active Substance: SPIRONOLACTONE
     Dosage: 25 MG, DAILY
  15. TICAGRELOR [Concomitant]
     Active Substance: TICAGRELOR
     Dosage: 90 MG, DAILY

REACTIONS (1)
  - Atrial fibrillation [Recovered/Resolved]

NARRATIVE: CASE EVENT DATE: 20240729
